FAERS Safety Report 14900211 (Version 1)
Quarter: 2018Q2

REPORT INFORMATION
  Report Type: Spontaneous
  Country: FR (occurrence: FR)
  Receive Date: 20180516
  Receipt Date: 20180516
  Transmission Date: 20180711
  Serious: Yes (Other)
  Sender: FDA-Public Use
  Company Number: FR-MERCK KGAA-2047903

PATIENT
  Age: 44 Year
  Sex: Female

DRUGS (1)
  1. NOVOTHYROX [Suspect]
     Active Substance: LEVOTHYROXINE SODIUM
     Indication: SECONDARY HYPOTHYROIDISM
     Dates: start: 20170501, end: 20170826

REACTIONS (41)
  - Suicidal ideation [Recovering/Resolving]
  - Memory impairment [Recovering/Resolving]
  - Social avoidant behaviour [Recovering/Resolving]
  - Anhedonia [Recovering/Resolving]
  - Negative thoughts [Recovering/Resolving]
  - Diarrhoea [Recovering/Resolving]
  - Dizziness [Recovering/Resolving]
  - Gastrointestinal disorder [Recovering/Resolving]
  - Muscle atrophy [Recovering/Resolving]
  - Myalgia [Not Recovered/Not Resolved]
  - Loss of libido [Recovering/Resolving]
  - Balance disorder [Recovering/Resolving]
  - Tachycardia [Recovering/Resolving]
  - Fatigue [Recovering/Resolving]
  - Thirst [Recovering/Resolving]
  - Disturbance in attention [Recovering/Resolving]
  - Vision blurred [Recovering/Resolving]
  - Oedema peripheral [Recovering/Resolving]
  - Sleep disorder [Not Recovered/Not Resolved]
  - Extrasystoles [Recovering/Resolving]
  - Visual impairment [Recovering/Resolving]
  - Affective disorder [Recovering/Resolving]
  - Pruritus [Recovering/Resolving]
  - General physical health deterioration [Recovering/Resolving]
  - Amnesia [Recovering/Resolving]
  - Skin disorder [Recovering/Resolving]
  - Somnolence [Not Recovered/Not Resolved]
  - Pyrexia [None]
  - Dyspnoea [Recovering/Resolving]
  - Tendon pain [Not Recovered/Not Resolved]
  - Menstrual disorder [Recovering/Resolving]
  - Weight increased [Recovering/Resolving]
  - Mood swings [Recovering/Resolving]
  - Asthenia [Recovering/Resolving]
  - Crying [Recovering/Resolving]
  - Hyperthermia [Recovering/Resolving]
  - Emotional distress [Recovering/Resolving]
  - Middle insomnia [Not Recovered/Not Resolved]
  - Muscular weakness [Recovering/Resolving]
  - Nausea [Recovering/Resolving]
  - Muscle spasms [Not Recovered/Not Resolved]

NARRATIVE: CASE EVENT DATE: 2017
